FAERS Safety Report 7899987-4 (Version None)
Quarter: 2011Q4

REPORT INFORMATION
  Report Type: 
  Country: None (occurrence: None)
  Receive Date: 20111107
  Receipt Date: 20111021
  Transmission Date: 20120403
  Serious: Yes (Other)
  Sender: FDA-Public Use
  Company Number: US-AMGEN-USASP2011037248

PATIENT
  Age: 50 Year
  Sex: Female

DRUGS (2)
  1. ENBREL [Suspect]
     Indication: RHEUMATOID ARTHRITIS
     Dosage: 50 MG, QWK
     Dates: start: 20110630
  2. ENBREL [Suspect]
     Dosage: 50 MG, QWK
     Dates: start: 20110630

REACTIONS (20)
  - COLITIS [None]
  - HEADACHE [None]
  - MOBILITY DECREASED [None]
  - ASTHMA [None]
  - TONSILLAR INFLAMMATION [None]
  - RESPIRATORY TRACT CONGESTION [None]
  - PAIN [None]
  - INJECTION SITE REACTION [None]
  - CYSTITIS [None]
  - RESPIRATORY TRACT INFECTION [None]
  - BONE MARROW OEDEMA [None]
  - OEDEMA PERIPHERAL [None]
  - INJECTION SITE PAIN [None]
  - ACNE [None]
  - INJECTION SITE ERYTHEMA [None]
  - SYNOVIAL FLUID ANALYSIS ABNORMAL [None]
  - MENISCUS LESION [None]
  - SWELLING [None]
  - FALL [None]
  - INJECTION SITE PRURITUS [None]
